FAERS Safety Report 25587607 (Version 1)
Quarter: 2025Q3

REPORT INFORMATION
  Report Type: Report from Study
  Country: IN (occurrence: IN)
  Receive Date: 20250721
  Receipt Date: 20250721
  Transmission Date: 20251020
  Serious: Yes (Other)
  Sender: DAIICHI
  Company Number: IN-AstraZeneca-CH-00908830A

PATIENT
  Sex: Female

DRUGS (1)
  1. ENHERTU [Suspect]
     Active Substance: FAM-TRASTUZUMAB DERUXTECAN-NXKI
     Indication: Breast cancer
     Dosage: 300 MILLIGRAM, Q3W
     Route: 041

REACTIONS (5)
  - Altered state of consciousness [Unknown]
  - Blood creatinine abnormal [Unknown]
  - Fatigue [Unknown]
  - Alopecia [Unknown]
  - Mental fatigue [Unknown]
